FAERS Safety Report 21106354 (Version 2)
Quarter: 2022Q3

REPORT INFORMATION
  Report Type: Spontaneous
  Country: US (occurrence: US)
  Receive Date: 20220720
  Receipt Date: 20220831
  Transmission Date: 20221027
  Serious: No
  Sender: FDA-Public Use
  Company Number: US-PFIZER INC-202200980824

PATIENT
  Age: 83 Year
  Sex: Female
  Weight: 82.993 kg

DRUGS (2)
  1. DOFETILIDE [Suspect]
     Active Substance: DOFETILIDE
     Indication: Atrial fibrillation
     Dosage: UNK
  2. DOFETILIDE [Suspect]
     Active Substance: DOFETILIDE
     Dosage: 125 MG, 2X/DAY
     Dates: start: 2018

REACTIONS (1)
  - Drug ineffective [Unknown]
